FAERS Safety Report 9494804 (Version 2)
Quarter: 2013Q3

REPORT INFORMATION
  Report Type: Spontaneous
  Country: US (occurrence: US)
  Receive Date: 20130903
  Receipt Date: 20130920
  Transmission Date: 20140515
  Serious: Yes (Death)
  Sender: FDA-Public Use
  Company Number: US-PFIZER INC-2013249834

PATIENT
  Age: 64 Year
  Sex: Female

DRUGS (2)
  1. AROMASIN [Suspect]
     Indication: BREAST CANCER FEMALE
     Dosage: 25 MG, 1X/DAY
  2. KADCYLA [Suspect]
     Indication: BREAST CANCER
     Dosage: UNK

REACTIONS (2)
  - Disease progression [Fatal]
  - Breast cancer female [Fatal]
